FAERS Safety Report 5297933-3 (Version None)
Quarter: 2007Q2

REPORT INFORMATION
  Report Type: 
  Country: None (occurrence: None)
  Receive Date: 20070416
  Receipt Date: 20070410
  Transmission Date: 20071010
  Serious: Yes (Hospitalization)
  Sender: FDA-Public Use
  Company Number: JP-JPN-A200701139

PATIENT
  Age: 68 Year
  Sex: Female

DRUGS (6)
  1. VALTREX [Suspect]
     Indication: HERPES ZOSTER
     Dosage: 500MG SEE DOSAGE TEXT
     Route: 048
     Dates: start: 20070312, end: 20070314
  2. CYANOCOBALAMIN [Concomitant]
     Route: 065
  3. UNKNOWN DRUG [Concomitant]
     Route: 065
  4. GLYCORAN [Concomitant]
     Route: 048
  5. VALTREX [Concomitant]
     Dosage: .5G PER DAY
     Dates: start: 20070317, end: 20070317
  6. VALTREX [Concomitant]
     Dosage: .5G PER DAY
     Route: 048
     Dates: start: 20070320, end: 20070320

REACTIONS (4)
  - DRUG TOXICITY [None]
  - DYSARTHRIA [None]
  - HYPOAESTHESIA [None]
  - OVERDOSE [None]
